FAERS Safety Report 8716202 (Version 2)
Quarter: 2012Q4

REPORT INFORMATION
  Report Type: 
  Country: JP (occurrence: JP)
  Receive Date: 20120809
  Receipt Date: 20121221
  Transmission Date: 20130627
  Serious: Yes (Other)
  Sender: FDA-Public Use
  Company Number: JP-009507513-2012SP035866

PATIENT
  Age: 62 Year
  Sex: Female
  Weight: 48 kg

DRUGS (25)
  1. PEGINTRON [Suspect]
     Indication: CHRONIC HEPATITIS C
     Dosage: 1.5 ?g/kg, Unknown
     Route: 058
     Dates: start: 20120424, end: 20120529
  2. PEGINTRON [Suspect]
     Dosage: 1.5 Microgram per kilogram, qw
     Route: 058
     Dates: start: 20120614
  3. REBETOL [Suspect]
     Indication: CHRONIC HEPATITIS C
     Dosage: 600 mg, QD
     Route: 048
     Dates: start: 20120424, end: 20120514
  4. REBETOL [Suspect]
     Dosage: 400 mg, QD
     Route: 048
     Dates: start: 20120515, end: 20120611
  5. REBETOL [Suspect]
     Dosage: 200 mg, qd
     Route: 048
     Dates: start: 20120703
  6. REBETOL [Suspect]
     Dosage: 400 mg, qd
     Route: 048
     Dates: start: 20120710
  7. TELAVIC [Suspect]
     Indication: CHRONIC HEPATITIS C
     Dosage: 2500 mg, qd
     Route: 048
     Dates: start: 20120424, end: 20120507
  8. TELAVIC [Suspect]
     Dosage: 1500 mg, QD
     Route: 048
     Dates: start: 20120508, end: 20120611
  9. TELAVIC [Suspect]
     Dosage: 750 mg, qd
     Route: 048
     Dates: start: 20120703
  10. TELAVIC [Suspect]
     Dosage: 1500 mg, qd
     Route: 048
     Dates: start: 20120710
  11. LEXOTAN [Concomitant]
     Indication: INSOMNIA
     Dosage: 4 mg, qd
     Route: 048
  12. LENDORMIN [Concomitant]
     Indication: INSOMNIA
     Dosage: 0.5 mg, qd
     Route: 048
  13. RYTHMODAN [Concomitant]
     Indication: ATRIAL FIBRILLATION
     Dosage: 300 mg, qd
     Route: 048
  14. PLETAAL [Concomitant]
     Indication: ATRIAL FIBRILLATION
     Dosage: 100 mg, qd
     Route: 048
  15. SELBEX [Concomitant]
     Indication: PROPHYLAXIS
     Dosage: 150 mg, qd
     Route: 048
  16. UNIPHYL LA [Concomitant]
     Dosage: 200 mg, qd
     Route: 048
  17. BISOLVON [Concomitant]
     Dosage: 12 mg, qd
     Route: 048
  18. BENFOTIAMINE (+) CYANOCOBALAMIN (+) PYRIDOXINE HYDROCHLORIDE [Concomitant]
     Indication: HYPOVITAMINOSIS
     Dosage: 75 mg, qd
     Route: 048
  19. MEDICON (DEXTROMETHORPHAN HYDROBROMIDE) [Concomitant]
     Indication: ASTHMA
     Dosage: 90 mg, qd
     Route: 048
  20. EVISTA [Concomitant]
     Indication: OSTEOPOROSIS
     Dosage: 60 mg, qd
     Route: 048
  21. BENET [Concomitant]
     Indication: OSTEOPOROSIS
     Dosage: 17.5 MG, qd
     Route: 048
  22. QVAR [Concomitant]
     Indication: ASTHMA
     Dosage: UNK, bid
     Route: 055
  23. LOXONIN [Concomitant]
     Indication: PROPHYLAXIS
     Dosage: 180 mg, qd
     Route: 048
  24. PRIMPERAN [Concomitant]
     Indication: PROPHYLAXIS
     Dosage: 15 mg, qd
     Route: 048
     Dates: start: 20120424
  25. PARIET [Concomitant]
     Indication: PROPHYLAXIS
     Dosage: 10 mg, qd
     Route: 048
     Dates: start: 20120424

REACTIONS (1)
  - Anaemia [Recovering/Resolving]
